FAERS Safety Report 9738584 (Version 1)
Quarter: 2013Q4

REPORT INFORMATION
  Report Type: Spontaneous
  Country: US (occurrence: US)
  Receive Date: 20131209
  Receipt Date: 20131209
  Transmission Date: 20140711
  Serious: Yes (Hospitalization, Other)
  Sender: FDA-Public Use
  Company Number: US-ROCHE-1309572

PATIENT
  Age: 54 Year
  Sex: Male

DRUGS (4)
  1. RITUXAN [Suspect]
     Indication: NON-HODGKIN^S LYMPHOMA
     Dosage: ONCE A WEEK FOR FOUR WEEKS
     Route: 042
     Dates: start: 20131112
  2. FENTANYL PATCH [Concomitant]
     Indication: NON-HODGKIN^S LYMPHOMA
     Route: 061
  3. MORPHINE [Concomitant]
     Indication: NON-HODGKIN^S LYMPHOMA
  4. OXYCODONE [Concomitant]
     Indication: NON-HODGKIN^S LYMPHOMA

REACTIONS (14)
  - Loss of consciousness [Recovered/Resolved]
  - Dysarthria [Not Recovered/Not Resolved]
  - Confusional state [Recovered/Resolved]
  - Mental impairment [Recovered/Resolved]
  - Gait disturbance [Unknown]
  - Transient ischaemic attack [Unknown]
  - Dehydration [Unknown]
  - Balance disorder [Unknown]
  - Hemiparesis [Unknown]
  - Tongue ulceration [Unknown]
  - Chest pain [Unknown]
  - Lymphadenopathy [Unknown]
  - Bladder pain [Unknown]
  - Fatigue [Unknown]
